FAERS Safety Report 26117868 (Version 1)
Quarter: 2025Q4

REPORT INFORMATION
  Report Type: Spontaneous
  Country: EU (occurrence: EU)
  Receive Date: 20251203
  Receipt Date: 20251203
  Transmission Date: 20260117
  Serious: Yes (Life-Threatening)
  Sender: BOEHRINGER INGELHEIM
  Company Number: None

PATIENT
  Age: 80 Year
  Sex: Female
  Weight: 63 kg

DRUGS (11)
  1. IPRATROPIUM BROMIDE [Suspect]
     Active Substance: IPRATROPIUM BROMIDE
     Indication: Chronic obstructive pulmonary disease
     Dosage: 2 ML (1 AMPOULE),4 TIMES A DAY
     Dates: start: 20250526, end: 20250527
  2. METFORMINE TABLET MGA  500MG / Brand name not specified [Concomitant]
     Indication: Product used for unknown indication
     Dosage: TABLET MET GEREGULEERDE AFGIFTE, 500 MG (MILLIGRAM)
  3. PANTOPRAZOLE [Concomitant]
     Active Substance: PANTOPRAZOLE
     Indication: Product used for unknown indication
     Dosage: MAAGSAPRESISTENTE TABLET, 40 MG (MILLIGRAM)
  4. APIXABAN TABLET 5MG / Brand name not specified [Concomitant]
     Indication: Product used for unknown indication
  5. PRAVASTATIN [Concomitant]
     Active Substance: PRAVASTATIN
     Indication: Product used for unknown indication
  6. METOPROLOL TABLET MGA  50MG (SUCCINAAT) / Brand name not specified [Concomitant]
     Indication: Product used for unknown indication
     Dosage: TABLET MET GEREGULEERDE AFGIFTE, 50 MG (MILLIGRAM)
  7. TIOTROPIUM BROMIDE [Concomitant]
     Active Substance: TIOTROPIUM BROMIDE
     Indication: Product used for unknown indication
     Dosage: VERNEVELVLOEISTOF, 2,5 ?G/DOSIS (MICROGRAM PER DOSIS)
  8. CALCIUMCARBONAAT/COLECALCIFEROL TABLET 500MG/100IE - Non-Current drug [Concomitant]
     Indication: Product used for unknown indication
     Dosage: 500/800 KAUWTABLET
  9. c CAPSULE MGA  50MG / TAMBOCOR CR CAPSULE MGA  50MG [Concomitant]
     Indication: Product used for unknown indication
     Dosage: CAPSULE MET GEREGULEERDE AFGIFTE, 50 MG (MILLIGRAM)
  10. c INJVLST 60MG/ML / PROLIA 60 INJVLST 60MG/ML WWSP 1ML [Concomitant]
     Indication: Product used for unknown indication
     Dosage: INJECTIEVLOEISTOF, 60 MG/ML (MILLIGRAM PER MILLILITER)
  11. CICLESONIDE [Concomitant]
     Active Substance: CICLESONIDE
     Indication: Product used for unknown indication
     Dosage: AEROSOL, 160 ?G/DOSIS (MICROGRAM PER DOSIS)

REACTIONS (1)
  - Bronchospasm paradoxical [Recovered/Resolved]
